FAERS Safety Report 6856583-5 (Version None)
Quarter: 2010Q3

REPORT INFORMATION
  Report Type: 
  Country: None (occurrence: None)
  Receive Date: 20100719
  Receipt Date: 20100709
  Transmission Date: 20110219
  Serious: Yes (Hospitalization, Other)
  Sender: FDA-Public Use
  Company Number: JP-PFIZER INC-2010086046

PATIENT
  Age: 50 Year
  Sex: Male

DRUGS (4)
  1. NORVASC [Suspect]
     Indication: HYPERTENSION
     Dosage: 5 MG, DAILY
     Route: 048
     Dates: end: 20100401
  2. MICARDIS [Suspect]
     Indication: HYPERTENSION
     Dosage: 40 MG, DAILY
     Route: 048
     Dates: end: 20100401
  3. SALOBEL [Suspect]
     Indication: HYPERURICAEMIA
     Dosage: 200 MG, DAILY
     Route: 048
     Dates: end: 20100401
  4. CALONAL [Concomitant]
     Dosage: UNK
     Dates: start: 20100401

REACTIONS (2)
  - GASTROENTERITIS [None]
  - STEVENS-JOHNSON SYNDROME [None]
